FAERS Safety Report 8857875 (Version 1)
Quarter: 2012Q4

REPORT INFORMATION
  Report Type: 
  Country: DE (occurrence: DE)
  Receive Date: 20121024
  Receipt Date: 20121024
  Transmission Date: 20130627
  Serious: Yes (Hospitalization, Disabling)
  Sender: FDA-Public Use
  Company Number: DE-ELI_LILLY_AND_COMPANY-DE201210003294

PATIENT
  Age: 38 Year
  Sex: Male

DRUGS (1)
  1. FORSTEO [Suspect]
     Dosage: UNK UNK, qd
     Route: 058
     Dates: start: 20120912

REACTIONS (6)
  - Chest discomfort [Unknown]
  - Mobility decreased [Unknown]
  - Pain in extremity [Unknown]
  - Disability [Unknown]
  - Diabetes mellitus [Unknown]
  - Mood altered [Unknown]
